FAERS Safety Report 18274384 (Version 3)
Quarter: 2020Q4

REPORT INFORMATION
  Report Type: Report from Study
  Country: CA (occurrence: CA)
  Receive Date: 20200916
  Receipt Date: 20201106
  Transmission Date: 20210113
  Serious: Yes (Death, Other)
  Sender: FDA-Public Use
  Company Number: CA-HLS-202001453

PATIENT
  Age: 79 Year
  Sex: Female

DRUGS (1)
  1. CLOZARIL [Suspect]
     Active Substance: CLOZAPINE
     Indication: PRODUCT USED FOR UNKNOWN INDICATION
     Route: 048
     Dates: start: 20180810

REACTIONS (3)
  - Neutrophilia [Unknown]
  - Leukocytosis [Unknown]
  - Death [Fatal]

NARRATIVE: CASE EVENT DATE: 20200908
